FAERS Safety Report 4378935-8 (Version None)
Quarter: 2004Q2

REPORT INFORMATION
  Report Type: 
  Country: None (occurrence: None)
  Receive Date: 20040610
  Receipt Date: 20040601
  Transmission Date: 20050107
  Serious: Yes (Hospitalization, Other)
  Sender: FDA-Public Use
  Company Number: 2004036525

PATIENT
  Age: 51 Year
  Sex: Female

DRUGS (1)
  1. TAHOR (ATORVASTATIN) [Suspect]
     Indication: ILL-DEFINED DISORDER
     Dosage: ORAL
     Route: 048
     Dates: start: 20030415, end: 20040413

REACTIONS (3)
  - PERICARDIAL DISEASE [None]
  - POLYARTHRITIS [None]
  - RAYNAUD'S PHENOMENON [None]
